FAERS Safety Report 9648229 (Version 1)
Quarter: 2013Q4

REPORT INFORMATION
  Report Type: Report from Study
  Country: NL (occurrence: NL)
  Receive Date: 20131028
  Receipt Date: 20131028
  Transmission Date: 20140711
  Serious: Yes (Death)
  Sender: FDA-Public Use
  Company Number: PHHY2013NL120797

PATIENT
  Age: 90 Year
  Sex: Male

DRUGS (4)
  1. ZOMETA [Suspect]
     Indication: PROSTATE CANCER METASTATIC
     Dosage: 4 MG, ONCE EVERY 4 WEEKS
     Route: 042
  2. ZOMETA [Suspect]
     Dosage: UNK UKN, UNK
     Dates: start: 20120202
  3. ZOMETA [Suspect]
     Dosage: UNK UKN, UNK
     Dates: start: 20130910
  4. ZOMETA [Suspect]
     Dosage: UNK UKN, UNK
     Dates: start: 20131007

REACTIONS (1)
  - Death [Fatal]
